FAERS Safety Report 23361265 (Version 1)
Quarter: 2024Q1

REPORT INFORMATION
  Report Type: Other
  Country: TW (occurrence: None)
  Receive Date: 20240103
  Receipt Date: 20240103
  Transmission Date: 20240409
  Serious: Yes (Other)
  Sender: FDA-Public Use
  Company Number: TW-ROCHE-3484200

PATIENT

DRUGS (2)
  1. AVASTIN [Suspect]
     Active Substance: BEVACIZUMAB
     Indication: Hepatocellular carcinoma
     Route: 065
  2. TECENTRIQ [Suspect]
     Active Substance: ATEZOLIZUMAB
     Indication: Hepatocellular carcinoma
     Dosage: UNKNOWN DOSE
     Route: 065

REACTIONS (2)
  - Gastrointestinal haemorrhage [Unknown]
  - Intestinal perforation [Unknown]
